FAERS Safety Report 7335399-X (Version None)
Quarter: 2011Q1

REPORT INFORMATION
  Report Type: 
  Country: None (occurrence: None)
  Receive Date: 20110302
  Receipt Date: 20110302
  Transmission Date: 20110831
  Serious: Yes (Other)
  Sender: FDA-Public Use
  Company Number: None

PATIENT
  Age: 75 Year
  Sex: Male
  Weight: 104.3273 kg

DRUGS (1)
  1. TOPIRAMATE [Suspect]
     Indication: TREMOR
     Dosage: 1/2 TABLET ONCE DAILY (2-8-9-10-11-12)

REACTIONS (6)
  - DIZZINESS [None]
  - SOMNOLENCE [None]
  - HEADACHE [None]
  - FATIGUE [None]
  - NAUSEA [None]
  - HYPERVENTILATION [None]
